FAERS Safety Report 25432322 (Version 3)
Quarter: 2025Q4

REPORT INFORMATION
  Report Type: Spontaneous
  Country: CN (occurrence: CN)
  Receive Date: 20250613
  Receipt Date: 20251205
  Transmission Date: 20260117
  Serious: Yes (Hospitalization, Other)
  Sender: ROCHE
  Company Number: CN-002147023-NVSC2025CN089595

PATIENT
  Age: 45 Year
  Sex: Female

DRUGS (1)
  1. XOLAIR [Suspect]
     Active Substance: OMALIZUMAB
     Indication: Urticaria
     Dosage: 2 DOSAGE FORM (TOTALLY 300MG) (AT THE END OF MARCH)
     Route: 058
     Dates: start: 20250326

REACTIONS (22)
  - Drug eruption [Unknown]
  - Condition aggravated [Unknown]
  - Henoch-Schonlein purpura [Unknown]
  - Erythema multiforme [Unknown]
  - Rash macular [Unknown]
  - Rash [Unknown]
  - Full blood count increased [Unknown]
  - Blister [Unknown]
  - Stevens-Johnson syndrome [Unknown]
  - Herpes simplex [Unknown]
  - Herpes simplex test positive [Unknown]
  - Osteonecrosis [Unknown]
  - Liver injury [Unknown]
  - Renal injury [Unknown]
  - Hypoxia [Unknown]
  - Hypokalaemia [Unknown]
  - Epidermal necrosis [Unknown]
  - Alopecia [Unknown]
  - Discomfort [Unknown]
  - Pulmonary mass [Unknown]
  - Cyst [Unknown]
  - Cartilage injury [Unknown]

NARRATIVE: CASE EVENT DATE: 20250327
